FAERS Safety Report 19419328 (Version 6)
Quarter: 2024Q2

REPORT INFORMATION
  Report Type: Report from Study
  Country: US (occurrence: US)
  Receive Date: 20210615
  Receipt Date: 20240606
  Transmission Date: 20240716
  Serious: Yes (Hospitalization, Other)
  Sender: FDA-Public Use
  Company Number: US-VERTEX PHARMACEUTICALS-2021-005231

PATIENT
  Sex: Female
  Weight: 66 kg

DRUGS (6)
  1. TRIKAFTA [Suspect]
     Active Substance: ELEXACAFTOR\IVACAFTOR\TEZACAFTOR
     Indication: Cystic fibrosis
     Dosage: 2 TABLETS AM, 1 TABLET PM
     Route: 048
     Dates: start: 20191230, end: 20210430
  2. TRIKAFTA [Suspect]
     Active Substance: ELEXACAFTOR\IVACAFTOR\TEZACAFTOR
     Dosage: LOWER DOSE
     Route: 048
  3. TRIKAFTA [Suspect]
     Active Substance: ELEXACAFTOR\IVACAFTOR\TEZACAFTOR
     Dosage: 2 ORANGE TABS(50MG ELEXA/ 25MG TEZA/ 37.5MG IVA)AM 1BLUE TAB (75MG IVA)PM
     Route: 048
  4. TRIKAFTA [Suspect]
     Active Substance: ELEXACAFTOR\IVACAFTOR\TEZACAFTOR
     Dosage: 1 BLUE PILL (75 MG IVA ) IN AM AND 1 ORANGE PILL (50MG ELEXA/ 25MG TEZA/ 37.5MG IVA) PM
     Route: 048
     Dates: start: 20221227
  5. TRIKAFTA [Suspect]
     Active Substance: ELEXACAFTOR\IVACAFTOR\TEZACAFTOR
     Dosage: 1 BLUE PILL (75MG IVA) IN AM AND ALTERNATE BTW 1 AND 2 ORANGE PILLS (50MG ELEXA/ 25MG TEZA/ 37.5MG I
     Route: 048
     Dates: start: 202302, end: 2023
  6. TRIKAFTA [Suspect]
     Active Substance: ELEXACAFTOR\IVACAFTOR\TEZACAFTOR
     Dosage: PEDIATRIC DOSE; BLUE PILL (75 MG IVA) IN AM; ORANGE PILLS (50 MG ELEXA/ 25 MG TEZA/ 37.5 MG IVA) IN
     Route: 048
     Dates: start: 20230213

REACTIONS (6)
  - Depression [Recovering/Resolving]
  - Suicide attempt [Unknown]
  - Anxiety [Not Recovered/Not Resolved]
  - Insomnia [Not Recovered/Not Resolved]
  - Affective disorder [Not Recovered/Not Resolved]
  - Cough [Not Recovered/Not Resolved]

NARRATIVE: CASE EVENT DATE: 20200101
